FAERS Safety Report 15109768 (Version 4)
Quarter: 2019Q1

REPORT INFORMATION
  Report Type: Spontaneous
  Country: US (occurrence: US)
  Receive Date: 20180705
  Receipt Date: 20190326
  Transmission Date: 20190417
  Serious: Yes (Death, Disabling, Other)
  Sender: FDA-Public Use
  Company Number: US-ASTRAZENECA-2018SE84413

PATIENT
  Age: 20566 Day
  Sex: Female
  Weight: 76.2 kg

DRUGS (74)
  1. PROTONIX [Suspect]
     Active Substance: PANTOPRAZOLE SODIUM
     Indication: GASTROOESOPHAGEAL REFLUX DISEASE
     Route: 065
  2. LANTUS [Concomitant]
     Active Substance: INSULIN GLARGINE
  3. TUMS [Concomitant]
     Active Substance: CALCIUM CARBONATE
     Dosage: 2 TABLETS
     Route: 048
  4. ALLOPURINOL. [Concomitant]
     Active Substance: ALLOPURINOL
  5. NEXIUM [Suspect]
     Active Substance: ESOMEPRAZOLE MAGNESIUM
     Route: 048
     Dates: start: 201108, end: 201308
  6. PREVACID [Suspect]
     Active Substance: LANSOPRAZOLE
     Route: 065
     Dates: start: 1995, end: 20150424
  7. PROPRANOLOL [Concomitant]
     Active Substance: PROPRANOLOL HYDROCHLORIDE
     Route: 048
     Dates: start: 200811, end: 201109
  8. NOVOLOG [Concomitant]
     Active Substance: INSULIN ASPART
     Route: 048
  9. FUROSEMIDE. [Concomitant]
     Active Substance: FUROSEMIDE
     Route: 048
  10. PROPYLTHIOURACIL. [Concomitant]
     Active Substance: PROPYLTHIOURACIL
     Route: 048
     Dates: start: 200810, end: 200811
  11. ASPIRIN. [Concomitant]
     Active Substance: ASPIRIN
     Route: 048
     Dates: start: 200810
  12. LABETALOL [Concomitant]
     Active Substance: LABETALOL\LABETALOL HYDROCHLORIDE
     Route: 042
     Dates: start: 200810, end: 201108
  13. ALPRAZOLAM. [Concomitant]
     Active Substance: ALPRAZOLAM
     Route: 048
  14. ALBUTEROL. [Concomitant]
     Active Substance: ALBUTEROL
     Dosage: 2.5 MG IN 0.5 ML
  15. LEVALBUTEROL. [Concomitant]
     Active Substance: LEVALBUTEROL
  16. TORSEMIDE. [Concomitant]
     Active Substance: TORSEMIDE
     Route: 048
  17. THEOPHYLLINE [Concomitant]
     Active Substance: THEOPHYLLINE ANHYDROUS
     Route: 048
  18. ACYCLOVIR. [Concomitant]
     Active Substance: ACYCLOVIR
  19. OXYGEN. [Concomitant]
     Active Substance: OXYGEN
  20. NEXIUM 24HR [Suspect]
     Active Substance: ESOMEPRAZOLE MAGNESIUM
     Route: 048
     Dates: start: 1995, end: 20150424
  21. KYTRIL [Concomitant]
     Active Substance: GRANISETRON HYDROCHLORIDE
     Dosage: 1 MG IN 50 ML SALINE
  22. CYTOXAN [Concomitant]
     Active Substance: CYCLOPHOSPHAMIDE
     Dosage: IN 250 ML NORMAL SALINE
  23. METFORMIN [Concomitant]
     Active Substance: METFORMIN HYDROCHLORIDE
  24. HYDRALAZINE [Concomitant]
     Active Substance: HYDRALAZINE HYDROCHLORIDE
     Route: 048
  25. FOLIC ACID. [Concomitant]
     Active Substance: FOLIC ACID
     Dosage: 800 MCG
     Route: 048
     Dates: start: 201108
  26. KEPPRA [Concomitant]
     Active Substance: LEVETIRACETAM
     Route: 048
     Dates: start: 200810, end: 200811
  27. CLONIDINE. [Concomitant]
     Active Substance: CLONIDINE
     Route: 048
  28. LIDOCAINE. [Concomitant]
     Active Substance: LIDOCAINE
     Dosage: 1 %
     Dates: start: 20090825
  29. FLEET ENEMA [Concomitant]
     Active Substance: SODIUM PHOSPHATE, DIBASIC\SODIUM PHOSPHATE, MONOBASIC
     Indication: CONSTIPATION
     Route: 048
     Dates: start: 20090823
  30. MICRO-K [Concomitant]
     Active Substance: POTASSIUM CHLORIDE
     Dosage: 10 MEQ
     Route: 048
  31. METOLAZONE. [Concomitant]
     Active Substance: METOLAZONE
     Route: 048
  32. DEMADEX [Concomitant]
     Active Substance: TORSEMIDE
     Route: 048
  33. PRILOSEC [Suspect]
     Active Substance: OMEPRAZOLE MAGNESIUM
     Route: 048
     Dates: start: 1995, end: 20150424
  34. PROTONIX [Suspect]
     Active Substance: PANTOPRAZOLE SODIUM
     Indication: GASTROOESOPHAGEAL REFLUX DISEASE
     Route: 065
     Dates: start: 1995, end: 20150424
  35. PALONOSETRON. [Concomitant]
     Active Substance: PALONOSETRON HYDROCHLORIDE
     Dosage: 0.25 MG IN 50 ML SALINE
  36. CIMETIDINE [Concomitant]
     Active Substance: CIMETIDINE
  37. FLUDARA [Concomitant]
     Active Substance: FLUDARABINE PHOSPHATE
     Dosage: IN 100 ML SALINE
  38. LEVEMIR [Concomitant]
     Active Substance: INSULIN DETEMIR
     Dosage: 15 UNITS
     Route: 058
  39. METOCLOPRAMIDE. [Concomitant]
     Active Substance: METOCLOPRAMIDE
     Route: 042
     Dates: start: 201108
  40. PROPYLTHIOURACIL. [Concomitant]
     Active Substance: PROPYLTHIOURACIL
     Route: 048
     Dates: start: 201108, end: 201308
  41. ONDANSETRON [Concomitant]
     Active Substance: ONDANSETRON
     Indication: NAUSEA
     Route: 042
  42. LORAZEPAM. [Concomitant]
     Active Substance: LORAZEPAM
     Route: 042
  43. CARVEDILOL. [Concomitant]
     Active Substance: CARVEDILOL
     Route: 048
  44. NEXIUM [Suspect]
     Active Substance: ESOMEPRAZOLE MAGNESIUM
     Route: 048
     Dates: start: 2000, end: 20150427
  45. NEXIUM 24HR [Suspect]
     Active Substance: ESOMEPRAZOLE MAGNESIUM
     Route: 048
     Dates: start: 2000, end: 20150427
  46. PROTONIX [Suspect]
     Active Substance: PANTOPRAZOLE SODIUM
     Indication: GASTROOESOPHAGEAL REFLUX DISEASE
     Route: 065
     Dates: start: 2000, end: 20150427
  47. ACETAMINOPHEN. [Concomitant]
     Active Substance: ACETAMINOPHEN
     Route: 048
  48. PROPRANOLOL [Concomitant]
     Active Substance: PROPRANOLOL HYDROCHLORIDE
     Route: 048
     Dates: start: 201108
  49. PROPYLTHIOURACIL. [Concomitant]
     Active Substance: PROPYLTHIOURACIL
     Route: 048
     Dates: start: 200811, end: 201308
  50. KLOR-CON [Concomitant]
     Active Substance: POTASSIUM CHLORIDE
     Dosage: 40 MEQ
     Route: 048
     Dates: start: 201108, end: 201108
  51. TYLENOL [Concomitant]
     Active Substance: ACETAMINOPHEN
     Dates: start: 20090823
  52. ZOFRAN [Concomitant]
     Active Substance: ONDANSETRON HYDROCHLORIDE
  53. HYDROCORTISONE. [Concomitant]
     Active Substance: HYDROCORTISONE
     Dosage: 1 %
  54. NEXIUM [Suspect]
     Active Substance: ESOMEPRAZOLE MAGNESIUM
     Route: 048
     Dates: start: 1995, end: 20150424
  55. NEXIUM [Suspect]
     Active Substance: ESOMEPRAZOLE MAGNESIUM
     Route: 048
     Dates: end: 20131108
  56. RITUXAN [Concomitant]
     Active Substance: RITUXIMAB
     Dosage: NORMAL SALINE
  57. VITAMIN D [Concomitant]
     Active Substance: CHOLECALCIFEROL
     Dosage: 50,000 UNITS
     Route: 048
  58. NORVASC [Concomitant]
     Active Substance: AMLODIPINE BESYLATE
     Route: 048
  59. LEVOTHYROXINE. [Concomitant]
     Active Substance: LEVOTHYROXINE
     Dosage: 100 MCG
     Route: 048
  60. FUROSEMIDE. [Concomitant]
     Active Substance: FUROSEMIDE
     Dosage: 40 MG/4 ML10MG/ML DAILY
     Route: 042
  61. VITAMIN B12 [Concomitant]
     Active Substance: CYANOCOBALAMIN
     Dosage: 1000 MCG
     Route: 048
     Dates: start: 201108
  62. VALSARTAN. [Concomitant]
     Active Substance: VALSARTAN
     Route: 048
     Dates: start: 200810, end: 201108
  63. POLYETHYLENE GLYCOL [Concomitant]
     Active Substance: POLYETHYLENE GLYCOLS
     Route: 048
  64. CAPTOPRIL. [Concomitant]
     Active Substance: CAPTOPRIL
     Route: 048
  65. SYNTHROID [Concomitant]
     Active Substance: LEVOTHYROXINE SODIUM
     Dosage: 20 UNITS
     Route: 058
  66. DIPHENHYDRAMINE. [Concomitant]
     Active Substance: DIPHENHYDRAMINE
  67. HYDROCODONE BITARTRATE AND ACETAMINOPHEN [Concomitant]
     Active Substance: ACETAMINOPHEN\HYDROCODONE BITARTRATE
     Route: 048
     Dates: start: 201108, end: 201308
  68. GLUCAGON. [Concomitant]
     Active Substance: GLUCAGON
     Route: 030
  69. METOCLOPRAMIDE. [Concomitant]
     Active Substance: METOCLOPRAMIDE
     Route: 042
     Dates: start: 200811, end: 200812
  70. METOPROLOL TARTRATE. [Concomitant]
     Active Substance: METOPROLOL TARTRATE
     Route: 048
     Dates: start: 200810
  71. LABETALOL [Concomitant]
     Active Substance: LABETALOL\LABETALOL HYDROCHLORIDE
     Route: 048
     Dates: start: 201408
  72. CALCIUM GLUCONATE. [Concomitant]
     Active Substance: CALCIUM GLUCONATE
     Route: 042
  73. RANITIDINE. [Concomitant]
     Active Substance: RANITIDINE
     Route: 048
  74. LISINOPRIL. [Concomitant]
     Active Substance: LISINOPRIL
     Route: 048

REACTIONS (18)
  - Multiple organ dysfunction syndrome [Not Recovered/Not Resolved]
  - Cardiac failure congestive [Unknown]
  - End stage renal disease [Fatal]
  - Seizure [Fatal]
  - Dementia [Not Recovered/Not Resolved]
  - Tubulointerstitial nephritis [Unknown]
  - Thrombosis [Unknown]
  - Hypertensive cardiomegaly [Fatal]
  - Ventricular hypertrophy [Fatal]
  - Nephropathy [Not Recovered/Not Resolved]
  - Cystitis interstitial [Unknown]
  - Acute kidney injury [Unknown]
  - Chronic kidney disease [Unknown]
  - Acute coronary syndrome [Unknown]
  - Cardio-respiratory arrest [Fatal]
  - Renal failure [Not Recovered/Not Resolved]
  - Cerebrovascular accident [Unknown]
  - Depression [Unknown]

NARRATIVE: CASE EVENT DATE: 20090810
